FAERS Safety Report 16313584 (Version 2)
Quarter: 2019Q3

REPORT INFORMATION
  Report Type: Spontaneous
  Country: JP (occurrence: JP)
  Receive Date: 20190515
  Receipt Date: 20190723
  Transmission Date: 20191004
  Serious: Yes (Other)
  Sender: FDA-Public Use
  Company Number: JP-CELGENEUS-JPN-20190504721

PATIENT
  Age: 87 Year
  Sex: Male

DRUGS (2)
  1. BLOOD [Concomitant]
     Active Substance: WHOLE BLOOD
     Indication: FULL BLOOD COUNT DECREASED
     Route: 042
  2. VIDAZA [Suspect]
     Active Substance: AZACITIDINE
     Indication: MYELODYSPLASTIC SYNDROME
     Dosage: 75 MILLIGRAM/SQ. METER
     Route: 042

REACTIONS (1)
  - Oedema peripheral [Unknown]
